FAERS Safety Report 8178568-1 (Version None)
Quarter: 2012Q1

REPORT INFORMATION
  Report Type: 
  Country: None (occurrence: None)
  Receive Date: 20120301
  Receipt Date: 20120220
  Transmission Date: 20120608
  Serious: Yes (Hospitalization, Other)
  Sender: FDA-Public Use
  Company Number: US-ELI_LILLY_AND_COMPANY-US201201007929

PATIENT
  Sex: Female

DRUGS (2)
  1. FORTEO [Suspect]
     Indication: OSTEOPOROSIS
     Dosage: 20 UG, QD
     Dates: start: 20120117
  2. FORTEO [Suspect]
     Dosage: 20 UG, QD

REACTIONS (7)
  - FRACTURED COCCYX [None]
  - ARTHRALGIA [None]
  - INJECTION SITE HAEMATOMA [None]
  - BACTERIAL INFECTION [None]
  - THORACIC VERTEBRAL FRACTURE [None]
  - INJECTION SITE PAIN [None]
  - PAIN [None]
